FAERS Safety Report 14664793 (Version 1)
Quarter: 2018Q1

REPORT INFORMATION
  Report Type: Spontaneous
  Country: DE (occurrence: DE)
  Receive Date: 20180321
  Receipt Date: 20180321
  Transmission Date: 20180509
  Serious: Yes (Other)
  Sender: FDA-Public Use
  Company Number: DE-SA-2017SA258044

PATIENT
  Age: 2 Year
  Sex: Female
  Weight: 13.8 kg

DRUGS (1)
  1. MYOZYME [Suspect]
     Active Substance: ALGLUCOSIDASE ALFA
     Indication: GLYCOGEN STORAGE DISEASE TYPE II
     Route: 041
     Dates: start: 20160628

REACTIONS (10)
  - Hypersensitivity [Recovered/Resolved]
  - Erythema [Recovered/Resolved]
  - Upper respiratory tract infection [Unknown]
  - Pain [Unknown]
  - Smear site unspecified abnormal [Unknown]
  - Hordeolum [Unknown]
  - Gastritis [Unknown]
  - Embedded device [Unknown]
  - Staphylococcal infection [Unknown]
  - Hyperhidrosis [Recovered/Resolved]

NARRATIVE: CASE EVENT DATE: 20171219
